FAERS Safety Report 7065420-8 (Version None)
Quarter: 2010Q4

REPORT INFORMATION
  Report Type: 
  Country: None (occurrence: None)
  Receive Date: 20101027
  Receipt Date: 20101019
  Transmission Date: 20110411
  Serious: Yes (Other)
  Sender: FDA-Public Use
  Company Number: DE-ROCHE-732253

PATIENT
  Sex: Female
  Weight: 57 kg

DRUGS (3)
  1. BONIVA [Suspect]
     Indication: OSTEOPOROSIS
     Dosage: LAST BONVIVA APPLICATION ON 22 SEP 2009.
     Route: 042
     Dates: start: 20090922, end: 20090922
  2. LEVOTHYROXINE SODIUM [Concomitant]
  3. METOPROLOL [Concomitant]

REACTIONS (1)
  - BLOOD AMYLASE INCREASED [None]
